FAERS Safety Report 13061724 (Version 1)
Quarter: 2016Q4

REPORT INFORMATION
  Report Type: Spontaneous
  Country: US (occurrence: US)
  Receive Date: 20161226
  Receipt Date: 20161226
  Transmission Date: 20170207
  Serious: No
  Sender: FDA-Public Use
  Company Number: US-NOVEN PHARMACEUTICALS, INC.-US2016002412

PATIENT

DRUGS (1)
  1. MINIVELLE [Suspect]
     Active Substance: ESTRADIOL
     Indication: ARTIFICIAL MENOPAUSE
     Dosage: 0.05 MG, UNKNOWN
     Route: 062

REACTIONS (2)
  - Product quality issue [Unknown]
  - Migraine [Unknown]
